FAERS Safety Report 26002645 (Version 1)
Quarter: 2025Q4

REPORT INFORMATION
  Report Type: Spontaneous
  Country: US (occurrence: US)
  Receive Date: 20251106
  Receipt Date: 20251106
  Transmission Date: 20260117
  Serious: No
  Sender: CURRAX PHARMACEUTICALS
  Company Number: US-CURRAX PHARMACEUTICALS LLC-US-2024CUR004539

PATIENT
  Age: 63 Year

DRUGS (4)
  1. CONTRAVE [Suspect]
     Active Substance: BUPROPION HYDROCHLORIDE\NALTREXONE HYDROCHLORIDE
     Indication: Product used for unknown indication
     Dosage: STRENGTH 8/90 MG, ONE PILL A DAY
     Route: 048
     Dates: start: 2024, end: 202410
  2. CONTRAVE [Suspect]
     Active Substance: BUPROPION HYDROCHLORIDE\NALTREXONE HYDROCHLORIDE
     Dosage: STRENGTH: 8/90 MG, 2 PILLS A DAY
     Route: 048
     Dates: start: 202410, end: 202410
  3. CONTRAVE [Suspect]
     Active Substance: BUPROPION HYDROCHLORIDE\NALTREXONE HYDROCHLORIDE
     Dosage: STRENGTH 8/90 MG, ONE PILL AT 11 AM
     Route: 048
     Dates: start: 202410
  4. VITAMINS [Concomitant]
     Active Substance: VITAMINS
     Indication: Product used for unknown indication
     Dosage: UNK

REACTIONS (3)
  - Malaise [Recovering/Resolving]
  - Eructation [Unknown]
  - Therapeutic response unexpected [Unknown]

NARRATIVE: CASE EVENT DATE: 20241001
